FAERS Safety Report 9028380 (Version 3)
Quarter: 2013Q2

REPORT INFORMATION
  Report Type: Spontaneous
  Country: JP (occurrence: JP)
  Receive Date: 20130124
  Receipt Date: 20130411
  Transmission Date: 20140414
  Serious: Yes (Death, Life-Threatening, Hospitalization, Other)
  Sender: FDA-Public Use
  Company Number: JP-ASTELLAS-2013US000867

PATIENT
  Age: 66 Year
  Sex: Male
  Weight: 53 kg

DRUGS (7)
  1. TARCEVA [Suspect]
     Indication: LUNG NEOPLASM MALIGNANT
     Dosage: 150 MG, UID/QD
     Route: 048
     Dates: start: 20091020, end: 20091027
  2. FENTANYL [Suspect]
     Indication: PAIN
     Dosage: 16 DF, UID/QD
     Route: 041
     Dates: start: 200910
  3. FENTANYL [Suspect]
     Dosage: 20 DF, UID/QD
     Route: 041
     Dates: start: 20091023, end: 20091023
  4. FENTANYL [Suspect]
     Dosage: 24 DF, UID/QD
     Route: 041
     Dates: start: 20091024, end: 20091024
  5. DUROTEP [Suspect]
     Indication: PAIN
     Dosage: 1 DF, TID
     Route: 062
     Dates: start: 20091027, end: 20091027
  6. DUROTEP [Suspect]
     Dosage: 2 DF, UID/QD
     Route: 062
     Dates: start: 20091028
  7. NOVOLIN [Concomitant]
     Indication: DIABETES MELLITUS
     Dosage: 12 DF, UID/QD (8E AND 4E)
     Route: 058
     Dates: start: 20091028

REACTIONS (5)
  - Pneumonia bacterial [Unknown]
  - Interstitial lung disease [Fatal]
  - Somnolence [Unknown]
  - Vomiting [Unknown]
  - Malignant neoplasm progression [Fatal]
